FAERS Safety Report 20192044 (Version 1)
Quarter: 2021Q4

REPORT INFORMATION
  Report Type: Spontaneous
  Country: US (occurrence: US)
  Receive Date: 20211216
  Receipt Date: 20211216
  Transmission Date: 20220303
  Serious: Yes (Other)
  Sender: FDA-Public Use
  Company Number: US-SUN PHARMACEUTICAL INDUSTRIES LTD-2021R1-320515

PATIENT
  Age: 45 Year
  Sex: Male

DRUGS (1)
  1. IBUPROFEN [Suspect]
     Active Substance: IBUPROFEN
     Indication: Pain
     Dosage: UNK (400MG, 8 TABLET)
     Route: 065

REACTIONS (2)
  - Carbohydrate antigen 19-9 increased [Recovered/Resolved]
  - Drug-induced liver injury [Recovered/Resolved]
